FAERS Safety Report 5511822-8 (Version None)
Quarter: 2007Q4

REPORT INFORMATION
  Report Type: 
  Country: None (occurrence: None)
  Receive Date: 20071109
  Receipt Date: 20071105
  Transmission Date: 20080405
  Serious: Yes (Hospitalization)
  Sender: FDA-Public Use
  Company Number: GB-BOEHRINGER INGELHEIM PHARMACEUTICALS, INC.-2007-DE-06638GD

PATIENT
  Age: 77 Year
  Sex: Male

DRUGS (1)
  1. TIOTROPIUM-BROMIDE [Suspect]
     Indication: CHRONIC OBSTRUCTIVE PULMONARY DISEASE
     Route: 055
     Dates: start: 20031202, end: 20040602

REACTIONS (9)
  - AORTIC ANEURYSM [None]
  - CARDIAC FAILURE CONGESTIVE [None]
  - CHRONIC OBSTRUCTIVE PULMONARY DISEASE [None]
  - COR PULMONALE [None]
  - HEPATIC STEATOSIS [None]
  - LUNG NEOPLASM [None]
  - PNEUMONIA KLEBSIELLA [None]
  - STAPHYLOCOCCAL INFECTION [None]
  - THROMBOPHLEBITIS SUPERFICIAL [None]
